FAERS Safety Report 9941014 (Version 1)
Quarter: 2014Q1

REPORT INFORMATION
  Report Type: Spontaneous
  Country: US (occurrence: US)
  Receive Date: 20140303
  Receipt Date: 20140303
  Transmission Date: 20141002
  Serious: Yes (Hospitalization, Other)
  Sender: FDA-Public Use
  Company Number: US-PFIZER INC-2014058367

PATIENT
  Age: 54 Year
  Sex: Male
  Weight: 77.1 kg

DRUGS (3)
  1. CELEBREX [Suspect]
     Indication: SPINAL DISORDER
     Dosage: UNK
  2. CELEBREX [Suspect]
     Indication: NERVE INJURY
  3. CELEBREX [Suspect]
     Indication: ARTHRITIS

REACTIONS (3)
  - Cervical vertebral fracture [Unknown]
  - Neck injury [Unknown]
  - Nerve injury [Unknown]
